FAERS Safety Report 8103892-8 (Version None)
Quarter: 2012Q1

REPORT INFORMATION
  Report Type: 
  Country: None (occurrence: None)
  Receive Date: 20120201
  Receipt Date: 20120130
  Transmission Date: 20120608
  Serious: Yes (Other)
  Sender: FDA-Public Use
  Company Number: AU-PFIZER INC-2012023766

PATIENT
  Age: 76 Year
  Sex: Male

DRUGS (2)
  1. LIPITOR [Suspect]
     Dosage: 80 MG AT NIGHT, UNK
     Dates: start: 20080501
  2. LIPITOR [Suspect]
     Dosage: UNK

REACTIONS (6)
  - ANXIETY [None]
  - CORONARY ARTERY BYPASS [None]
  - DEPRESSED MOOD [None]
  - ASTHENIA [None]
  - FATIGUE [None]
  - MUSCLE SPASMS [None]
